FAERS Safety Report 5873674-6 (Version None)
Quarter: 2008Q3

REPORT INFORMATION
  Report Type: 
  Country: None (occurrence: None)
  Receive Date: 20080908
  Receipt Date: 20080902
  Transmission Date: 20090109
  Serious: Yes (Death)
  Sender: FDA-Public Use
  Company Number: A0746248A

PATIENT
  Age: 63 Year
  Sex: Female

DRUGS (3)
  1. SERETIDE [Suspect]
     Indication: PULMONARY FIBROSIS
     Route: 055
     Dates: start: 20030801, end: 20080422
  2. AVELOX [Concomitant]
     Dates: start: 20071201, end: 20080422
  3. PREDNISONE [Concomitant]
     Dates: start: 19900101, end: 20080422

REACTIONS (1)
  - PULMONARY FIBROSIS [None]
